FAERS Safety Report 8012528-6 (Version None)
Quarter: 2011Q4

REPORT INFORMATION
  Report Type: 
  Country: None (occurrence: None)
  Receive Date: 20111229
  Receipt Date: 20111220
  Transmission Date: 20120403
  Serious: Yes (Hospitalization)
  Sender: FDA-Public Use
  Company Number: NL-BIOGENIDEC-2010BI037088

PATIENT
  Age: 48 Year
  Sex: Female

DRUGS (8)
  1. METFORMIN HCL [Concomitant]
  2. ENALAPRIL MALEATE [Concomitant]
  3. LACTULOSESIROP [Concomitant]
  4. CHLOORTALIDON [Concomitant]
  5. LABETALOL HCL [Concomitant]
  6. ACETAMINOPHEN [Concomitant]
  7. SIMVASTATIN [Concomitant]
  8. AVONEX [Suspect]
     Indication: MULTIPLE SCLEROSIS
     Route: 030
     Dates: start: 20050501

REACTIONS (2)
  - APHONIA [None]
  - DYSPHAGIA [None]
